FAERS Safety Report 8132074-9 (Version None)
Quarter: 2012Q1

REPORT INFORMATION
  Report Type: 
  Country: None (occurrence: None)
  Receive Date: 20120213
  Receipt Date: 20120213
  Transmission Date: 20120608
  Serious: Yes (Hospitalization)
  Sender: FDA-Public Use
  Company Number: US-PFIZER INC-2011089680

PATIENT
  Sex: Female
  Weight: 87.17 kg

DRUGS (24)
  1. REBIF [Suspect]
     Dosage: 44 MCG, 3/WEEK
     Route: 058
     Dates: start: 20040917, end: 20100731
  2. CLONAZEPAM [Concomitant]
  3. POTASSIUM CITRATE [Concomitant]
  4. REMERON [Concomitant]
  5. SPIRIVA [Concomitant]
  6. ADVAIR DISKUS 100/50 [Concomitant]
  7. BENAZEPRIL [Concomitant]
  8. BENZONATATE [Concomitant]
  9. IBANDRONATE SODIUM [Concomitant]
  10. MORPHINE SULFATE [Suspect]
     Dosage: 20 MG, UNK
     Route: 048
     Dates: start: 20070101
  11. VENTOLIN [Concomitant]
  12. CYANOCOBALAMIN [Concomitant]
  13. LEXAPRO [Concomitant]
  14. LISINOPRIL [Concomitant]
  15. TOPROL-XL [Concomitant]
  16. HEPARIN LOCK-FLUSH [Concomitant]
  17. MORPHINE SULFATE [Suspect]
     Indication: PAIN
     Dosage: 60 MG, UNK
     Route: 048
  18. SINGULAIR [Concomitant]
  19. COPAXONE [Concomitant]
  20. ABILIFY [Concomitant]
  21. NORVASC [Concomitant]
  22. VALIUM [Concomitant]
  23. SYNTHROID [Concomitant]
  24. SUMATRIPTAN SUCCINATE [Concomitant]

REACTIONS (9)
  - DIARRHOEA [None]
  - RENAL INJURY [None]
  - ACCIDENTAL OVERDOSE [None]
  - UNRESPONSIVE TO STIMULI [None]
  - LIVER DISORDER [None]
  - NAUSEA [None]
  - YELLOW SKIN [None]
  - HYPOPNOEA [None]
  - OCULAR ICTERUS [None]
